FAERS Safety Report 18088560 (Version 2)
Quarter: 2020Q3

REPORT INFORMATION
  Report Type: Spontaneous
  Country: DE (occurrence: DE)
  Receive Date: 20200729
  Receipt Date: 20200804
  Transmission Date: 20201103
  Serious: Yes (Other)
  Sender: FDA-Public Use
  Company Number: DE-PFIZER INC-2020285273

PATIENT
  Sex: Female

DRUGS (3)
  1. SERTRALINE HCL [Suspect]
     Active Substance: SERTRALINE HYDROCHLORIDE
     Indication: BORDERLINE PERSONALITY DISORDER
     Dosage: 50 MG, 1X/DAY (50 [MG/D] 27. ? 37.6. GESTATIONAL WEEK)
     Route: 064
  2. FLUOXETIN [Suspect]
     Active Substance: FLUOXETINE HYDROCHLORIDE
     Indication: BORDERLINE PERSONALITY DISORDER
     Dosage: 30 MG, 1X/DAY (30 [MG/D ] 0. ? 26.6. GESTATIONAL WEEK)
     Route: 064
  3. OMEPRAZOL [Concomitant]
     Active Substance: OMEPRAZOLE
     Indication: EPIGASTRIC DISCOMFORT
     Dosage: 40 MG, 1X/DAY (40 [MG/D ] 0. ? 37.6. GESTATIONAL WEEK)
     Route: 064
     Dates: start: 20190310, end: 20191130

REACTIONS (6)
  - Foetal growth restriction [Unknown]
  - Microcephaly [Recovered/Resolved]
  - Small for dates baby [Recovered/Resolved]
  - Apgar score low [Unknown]
  - Foetal exposure during pregnancy [Unknown]
  - Respiratory disorder neonatal [Recovered/Resolved]

NARRATIVE: CASE EVENT DATE: 20191130
